FAERS Safety Report 25625393 (Version 1)
Quarter: 2025Q3

REPORT INFORMATION
  Report Type: Spontaneous
  Country: US (occurrence: US)
  Receive Date: 20250731
  Receipt Date: 20250731
  Transmission Date: 20251020
  Serious: No
  Sender: ROCHE
  Company Number: US-ROCHE-10000349312

PATIENT
  Sex: Female

DRUGS (4)
  1. XOLAIR [Suspect]
     Active Substance: OMALIZUMAB
     Indication: Hidradenitis
     Dosage: (STRENGTH REPORTED AS 300 MG/2ML)
     Route: 058
     Dates: start: 202501
  2. XOLAIR [Suspect]
     Active Substance: OMALIZUMAB
     Indication: Asthma
     Dosage: (STRENGTH REPORTED AS 150 MG/ML)
     Route: 058
  3. XOLAIR [Suspect]
     Active Substance: OMALIZUMAB
     Indication: Anaphylactic reaction
  4. TEZSPIRE [Concomitant]
     Active Substance: TEZEPELUMAB-EKKO

REACTIONS (2)
  - Hypersensitivity [Unknown]
  - Product use in unapproved indication [Unknown]
